FAERS Safety Report 17183994 (Version 1)
Quarter: 2019Q4

REPORT INFORMATION
  Report Type: Report from Study
  Country: US (occurrence: US)
  Receive Date: 20191220
  Receipt Date: 20191220
  Transmission Date: 20200122
  Serious: Yes (Death, Hospitalization)
  Sender: FDA-Public Use
  Company Number: US-ZYDUS-044942

PATIENT
  Age: 62 Year
  Sex: Female

DRUGS (1)
  1. AMITRIPTYLINE [Suspect]
     Active Substance: AMITRIPTYLINE
     Indication: PRODUCT USED FOR UNKNOWN INDICATION
     Route: 065

REACTIONS (11)
  - Tachycardia [Unknown]
  - Electrocardiogram QRS complex prolonged [Unknown]
  - Seizure [Unknown]
  - Acute lung injury [Unknown]
  - Toxicity to various agents [Fatal]
  - Metabolic acidosis [Unknown]
  - Nervous system disorder [Unknown]
  - Arrhythmia [Unknown]
  - Anion gap [Unknown]
  - Electrocardiogram QT prolonged [Unknown]
  - Pneumonia aspiration [Unknown]
